FAERS Safety Report 5930292-9 (Version None)
Quarter: 2008Q4

REPORT INFORMATION
  Report Type: 
  Country: None (occurrence: None)
  Receive Date: 20081024
  Receipt Date: 20081014
  Transmission Date: 20090506
  Serious: Yes (Other)
  Sender: FDA-Public Use
  Company Number: US-BAXTER-2008BH010409

PATIENT
  Age: 57 Year
  Sex: Female
  Weight: 63 kg

DRUGS (6)
  1. GAMMAGARD LIQUID [Suspect]
     Indication: IMMUNODEFICIENCY COMMON VARIABLE
     Route: 042
  2. LYRICA [Concomitant]
     Indication: HEADACHE
     Route: 048
     Dates: start: 20070101
  3. LEXAPRO [Concomitant]
     Indication: HEADACHE
     Route: 048
     Dates: start: 20060101
  4. ALLEGRA [Concomitant]
     Indication: MULTIPLE ALLERGIES
     Route: 048
     Dates: start: 20060101
  5. ALEVE [Concomitant]
     Indication: NEURALGIA
     Route: 048
     Dates: start: 20060101
  6. ASPIRIN [Concomitant]
     Indication: NEURALGIA
     Route: 048

REACTIONS (6)
  - DYSARTHRIA [None]
  - HEADACHE [None]
  - INFLUENZA LIKE ILLNESS [None]
  - MALAISE [None]
  - PANIC ATTACK [None]
  - TREMOR [None]
